FAERS Safety Report 7225998-8 (Version None)
Quarter: 2011Q1

REPORT INFORMATION
  Report Type: 
  Country: None (occurrence: None)
  Receive Date: 20110113
  Receipt Date: 20101229
  Transmission Date: 20110831
  Serious: Yes (Other)
  Sender: FDA-Public Use
  Company Number: US-PFIZER INC-2010181176

PATIENT
  Sex: Female
  Weight: 54.422 kg

DRUGS (2)
  1. ALPHAGAN [Concomitant]
     Indication: GLAUCOMA
     Dosage: UNK
     Route: 047
  2. XALATAN [Suspect]
     Indication: GLAUCOMA
     Dosage: 1 GTT IN EACH EYE, UNK
     Route: 047
     Dates: start: 20100901, end: 20100101

REACTIONS (1)
  - HYPERSENSITIVITY [None]
